FAERS Safety Report 5844517-1 (Version None)
Quarter: 2008Q3

REPORT INFORMATION
  Report Type: 
  Country: None (occurrence: None)
  Receive Date: 20080812
  Receipt Date: 20080731
  Transmission Date: 20090109
  Serious: Yes (Other)
  Sender: FDA-Public Use
  Company Number: 237276J08USA

PATIENT
  Age: 48 Year
  Sex: Female
  Weight: 135.1719 kg

DRUGS (4)
  1. REBIF [Suspect]
     Indication: MULTIPLE SCLEROSIS
     Dosage: 44 MCG, 3 IN 1 WEEKS, SUBCUTANEOUS
     Route: 058
     Dates: start: 20030127
  2. ATENOLOL [Concomitant]
  3. NORVASC [Concomitant]
  4. LEXAPRO [Concomitant]

REACTIONS (1)
  - DIABETES MELLITUS [None]
